FAERS Safety Report 8952025 (Version 2)
Quarter: 2013Q1

REPORT INFORMATION
  Report Type: Spontaneous
  Country: US (occurrence: US)
  Receive Date: 20121204
  Receipt Date: 20130102
  Transmission Date: 20140127
  Serious: No
  Sender: FDA-Public Use
  Company Number: US-AMGEN-USASP2012070178

PATIENT
  Age: 79 Year
  Sex: Female

DRUGS (2)
  1. ENBREL [Suspect]
     Indication: RHEUMATOID ARTHRITIS
     Dosage: 50 MG, QWK
     Dates: start: 2002
  2. HUMIRA [Concomitant]
     Dosage: UNK

REACTIONS (4)
  - Local swelling [Unknown]
  - Pain [Unknown]
  - Pruritus generalised [Not Recovered/Not Resolved]
  - Drug ineffective [Unknown]
